FAERS Safety Report 7850542-1 (Version None)
Quarter: 2011Q4

REPORT INFORMATION
  Report Type: 
  Country: None (occurrence: None)
  Receive Date: 20111024
  Receipt Date: 20111011
  Transmission Date: 20120403
  Serious: Yes (Hospitalization)
  Sender: FDA-Public Use
  Company Number: 20110640

PATIENT
  Age: 96 Year
  Sex: Male

DRUGS (3)
  1. DEXAMETHASONE SODIUM PHOSPHATE [Suspect]
     Indication: EXOSTOSIS
     Dosage: .05 CC INTRAMUSCULAR
     Route: 030
     Dates: start: 20110722, end: 20110722
  2. LIDOCAINE 2% [Concomitant]
  3. TRIAMCINOLONE, 0.5 CC ONCE INTRAMUSCULAR [Concomitant]

REACTIONS (6)
  - PAIN [None]
  - GRANULOMA [None]
  - LOCAL SWELLING [None]
  - PRODUCT QUALITY ISSUE [None]
  - SQUAMOUS CELL CARCINOMA [None]
  - ERYTHEMA [None]
